FAERS Safety Report 25710162 (Version 1)
Quarter: 2025Q3

REPORT INFORMATION
  Report Type: Spontaneous
  Country: EU (occurrence: EU)
  Receive Date: 20250821
  Receipt Date: 20250821
  Transmission Date: 20251021
  Serious: Yes (Other)
  Sender: RANBAXY
  Company Number: EU-SUN PHARMACEUTICAL INDUSTRIES LTD-2025RR-523382

PATIENT
  Age: 21 Year
  Sex: Female

DRUGS (2)
  1. SERTRALINE [Suspect]
     Active Substance: SERTRALINE HYDROCHLORIDE
     Indication: Product used for unknown indication
     Route: 065
     Dates: end: 20250426
  2. AMITRIPTYLINE [Suspect]
     Active Substance: AMITRIPTYLINE
     Indication: Neuralgia
     Dosage: 75 MILLIGRAM, DAILY
     Route: 065
     Dates: start: 202504, end: 20250426

REACTIONS (7)
  - Chest pain [Unknown]
  - Dizziness [Unknown]
  - Mydriasis [Unknown]
  - Salivary hypersecretion [Unknown]
  - Feeling of body temperature change [Unknown]
  - Dry mouth [Unknown]
  - Tremor [Unknown]

NARRATIVE: CASE EVENT DATE: 20250420
